APPROVED DRUG PRODUCT: LEVOBUNOLOL HYDROCHLORIDE
Active Ingredient: LEVOBUNOLOL HYDROCHLORIDE
Strength: 0.25%
Dosage Form/Route: SOLUTION/DROPS;OPHTHALMIC
Application: A074307 | Product #001
Applicant: BAUSCH AND LOMB PHARMACEUTICALS INC
Approved: Mar 4, 1994 | RLD: No | RS: No | Type: DISCN